FAERS Safety Report 4600878-2 (Version None)
Quarter: 2005Q1

REPORT INFORMATION
  Report Type: 
  Country: None (occurrence: None)
  Receive Date: 20050127
  Receipt Date: 20041019
  Transmission Date: 20050727
  Serious: No
  Sender: FDA-Public Use
  Company Number: USA041081709

PATIENT
  Age: 61 Year
  Sex: Male
  Weight: 80 kg

DRUGS (6)
  1. STRATTERA [Suspect]
     Indication: ATTENTION DEFICIT/HYPERACTIVITY DISORDER
     Dosage: 18 MG DAY
     Dates: start: 20041017
  2. EFFEXOR [Concomitant]
  3. PROVIGIL [Concomitant]
  4. NAPROXEN SODIUM [Concomitant]
  5. ASPIRIN [Concomitant]
  6. CELEBREX [Concomitant]

REACTIONS (3)
  - ASTHENIA [None]
  - DEPRESSED MOOD [None]
  - SOMNOLENCE [None]
